FAERS Safety Report 10313955 (Version 3)
Quarter: 2014Q4

REPORT INFORMATION
  Report Type: Spontaneous
  Country: US (occurrence: US)
  Receive Date: 20140718
  Receipt Date: 20141208
  Transmission Date: 20150528
  Serious: Yes (Death, Other)
  Sender: FDA-Public Use
  Company Number: US-009507513-1407USA008009

PATIENT
  Sex: Female
  Weight: 51.7 kg

DRUGS (1)
  1. JANUMET [Suspect]
     Active Substance: METFORMIN HYDROCHLORIDE\SITAGLIPTIN PHOSPHATE
     Indication: TYPE 2 DIABETES MELLITUS
     Dosage: 50 MG / 1000 MG, QD
     Route: 048
     Dates: start: 20110711

REACTIONS (21)
  - Pancreatic carcinoma metastatic [Fatal]
  - Herpes zoster [Unknown]
  - Aortic stenosis [Unknown]
  - Metastases to liver [Unknown]
  - Metastases to large intestine [Fatal]
  - Mediastinal mass [Unknown]
  - Anxiety [Unknown]
  - Metastases to lymph nodes [Unknown]
  - Coronary artery bypass [Unknown]
  - Coronary artery disease [Unknown]
  - Skin cancer [Unknown]
  - Aortic valve calcification [Unknown]
  - Visual acuity reduced [Not Recovered/Not Resolved]
  - Fall [Unknown]
  - Drug ineffective [Unknown]
  - Cytopenia [Unknown]
  - Urine output decreased [Unknown]
  - Depression [Unknown]
  - Back pain [Unknown]
  - Pulmonary mass [Unknown]
  - Hyperlipidaemia [Unknown]

NARRATIVE: CASE EVENT DATE: 201203
